FAERS Safety Report 9630197 (Version 2)
Quarter: 2013Q4

REPORT INFORMATION
  Report Type: Spontaneous
  Country: US (occurrence: US)
  Receive Date: 20131017
  Receipt Date: 20131106
  Transmission Date: 20140711
  Serious: Yes (Other)
  Sender: FDA-Public Use
  Company Number: US-ACTAVIS-2013-18250

PATIENT
  Age: 35 Year
  Sex: Female
  Weight: 72 kg

DRUGS (8)
  1. FENTANYL-50 (WATSON LABORATORIES) [Suspect]
     Indication: INTERVERTEBRAL DISC PROTRUSION
     Dosage: 50MCG, ON PATCH EVERY 72 HOURS
     Route: 062
     Dates: start: 20130920
  2. FENTANYL-50 (WATSON LABORATORIES) [Suspect]
     Indication: ENDOMETRIOSIS
  3. FENTANYL-50 (WATSON LABORATORIES) [Suspect]
     Indication: BACK PAIN
  4. VITAMIN B NOS [Concomitant]
     Indication: PRODUCT USED FOR UNKNOWN INDICATION
     Dosage: 1000 MG, UNKNOWN
     Route: 065
  5. VITAMIN D                          /00107901/ [Concomitant]
     Indication: PRODUCT USED FOR UNKNOWN INDICATION
     Dosage: UNK, DAILY
     Route: 065
  6. ZOFRAN                             /00955301/ [Concomitant]
     Indication: PRODUCT USED FOR UNKNOWN INDICATION
     Dosage: 4 MG, PRN
     Route: 065
  7. XOPENEX HFA [Concomitant]
     Indication: PRODUCT USED FOR UNKNOWN INDICATION
     Dosage: UNK, PRN
     Route: 065
  8. PRENATAL                           /00231801/ [Concomitant]
     Indication: PRODUCT USED FOR UNKNOWN INDICATION
     Dosage: UNK, DAILY
     Route: 065

REACTIONS (9)
  - Loss of consciousness [Recovered/Resolved]
  - Drug withdrawal syndrome [Recovered/Resolved]
  - Palpitations [Recovered/Resolved]
  - Dehydration [Not Recovered/Not Resolved]
  - Dyspepsia [Not Recovered/Not Resolved]
  - Back pain [Not Recovered/Not Resolved]
  - Malaise [Not Recovered/Not Resolved]
  - Dizziness [Recovered/Resolved]
  - Pain [Recovered/Resolved]
